FAERS Safety Report 12651844 (Version 1)
Quarter: 2016Q3

REPORT INFORMATION
  Report Type: Report from Study
  Country: US (occurrence: US)
  Receive Date: 20160815
  Receipt Date: 20160815
  Transmission Date: 20161109
  Serious: Yes (Hospitalization, Other)
  Sender: FDA-Public Use
  Company Number: US-JNJFOC-20160329091

PATIENT
  Sex: Female

DRUGS (4)
  1. STELARA [Suspect]
     Active Substance: USTEKINUMAB
     Indication: PSORIASIS
     Route: 058
     Dates: start: 2015
  2. OTEZLA [Concomitant]
     Active Substance: APREMILAST
     Indication: PSORIATIC ARTHROPATHY
     Route: 065
     Dates: start: 2015
  3. OTEZLA [Concomitant]
     Active Substance: APREMILAST
     Indication: PSORIASIS
     Route: 065
     Dates: start: 2015
  4. STELARA [Suspect]
     Active Substance: USTEKINUMAB
     Indication: PSORIATIC ARTHROPATHY
     Route: 058
     Dates: start: 2015

REACTIONS (11)
  - Fall [Not Recovered/Not Resolved]
  - Anaemia [Unknown]
  - Syncope [Unknown]
  - Peripheral swelling [Not Recovered/Not Resolved]
  - Blood glucose decreased [Unknown]
  - Malaise [Not Recovered/Not Resolved]
  - Dysstasia [Not Recovered/Not Resolved]
  - Drug ineffective [Unknown]
  - Dehydration [Unknown]
  - Fatigue [Not Recovered/Not Resolved]
  - Hospitalisation [Unknown]

NARRATIVE: CASE EVENT DATE: 2015
